FAERS Safety Report 10444428 (Version 1)
Quarter: 2014Q3

REPORT INFORMATION
  Report Type: Spontaneous
  Country: US (occurrence: None)
  Receive Date: 20140909
  Receipt Date: 20140909
  Transmission Date: 20150326
  Serious: No
  Sender: FDA-Public Use
  Company Number: None

PATIENT
  Age: 69 Year
  Sex: Female
  Weight: 84.82 kg

DRUGS (1)
  1. COPAXONE [Suspect]
     Active Substance: GLATIRAMER ACETATE
     Indication: MULTIPLE SCLEROSIS
     Dosage: SHOTS - 1 MO. SUPPLY, ON MON, WED + FRI, INJECTION
     Dates: start: 20140625, end: 20140707

REACTIONS (12)
  - Chills [None]
  - Pyrexia [None]
  - Malaise [None]
  - Pain in extremity [None]
  - Feeling abnormal [None]
  - Pain [None]
  - Bed rest [None]
  - Nausea [None]
  - Insomnia [None]
  - Pain of skin [None]
  - Arthropod sting [None]
  - Influenza like illness [None]

NARRATIVE: CASE EVENT DATE: 20140625
